FAERS Safety Report 9806137 (Version 1)
Quarter: 2014Q1

REPORT INFORMATION
  Report Type: Spontaneous
  Country: CN (occurrence: None)
  Receive Date: 20140107
  Receipt Date: 20140107
  Transmission Date: 20141002
  Serious: Yes (Other)
  Sender: FDA-Public Use
  Company Number: 2013P1022343

PATIENT
  Sex: 0

DRUGS (2)
  1. PREDNISONE TABLETS [Suspect]
     Indication: GLOMERULONEPHRITIS MEMBRANOUS
     Route: 048
  2. CYCLOPHOSPHAMIDE [Concomitant]

REACTIONS (1)
  - Acute respiratory failure [None]
